FAERS Safety Report 14100426 (Version 1)
Quarter: 2017Q4

REPORT INFORMATION
  Report Type: Spontaneous
  Country: US (occurrence: US)
  Receive Date: 20171017
  Receipt Date: 20171017
  Transmission Date: 20180321
  Serious: Yes (Other)
  Sender: FDA-Public Use
  Company Number: US-ALLERGAN-1759036US

PATIENT
  Sex: Male

DRUGS (5)
  1. BOTOX [Suspect]
     Active Substance: ONABOTULINUMTOXINA
     Indication: DYSKINESIA
     Dosage: 150 UNITS, SINGLE
     Route: 030
  2. METOPROLOL. [Concomitant]
     Active Substance: METOPROLOL
     Indication: PRODUCT USED FOR UNKNOWN INDICATION
     Dosage: 25 MG, BID
     Route: 065
  3. RYTHMOL [Concomitant]
     Active Substance: PROPAFENONE HYDROCHLORIDE
     Indication: PRODUCT USED FOR UNKNOWN INDICATION
     Dosage: UNK UNK, TID
     Route: 065
  4. BOTOX [Suspect]
     Active Substance: ONABOTULINUMTOXINA
     Indication: DYSKINESIA
  5. BOTOX [Suspect]
     Active Substance: ONABOTULINUMTOXINA
     Indication: DYSKINESIA
     Dosage: 250 UNITS, SINGLE
     Route: 030

REACTIONS (4)
  - Atrial fibrillation [Unknown]
  - Arrhythmia [Unknown]
  - Off label use [Unknown]
  - Chest pain [Unknown]
